FAERS Safety Report 22586980 (Version 3)
Quarter: 2023Q2

REPORT INFORMATION
  Report Type: Report from Study
  Country: US (occurrence: US)
  Receive Date: 20230612
  Receipt Date: 20230619
  Transmission Date: 20230722
  Serious: Yes (Death)
  Sender: FDA-Public Use
  Company Number: US-ABBVIE-5285259

PATIENT
  Age: 71 Year
  Sex: Female

DRUGS (22)
  1. VENCLEXTA [Suspect]
     Active Substance: VENETOCLAX
     Indication: Primary amyloidosis
     Dosage: FORM STRENGTH: 100 MILLIGRAM
     Route: 048
  2. VENCLEXTA [Suspect]
     Active Substance: VENETOCLAX
     Indication: Primary amyloidosis
     Dosage: PILLS, FORM STRENGTH: 50 MILLIGRAM, TAKE 6 TABLET BY MOUTH (300MG) EVERY DAY
     Route: 048
  3. VENCLEXTA [Suspect]
     Active Substance: VENETOCLAX
     Indication: Primary amyloidosis
     Dosage: FORM STRENGTH: 100 MILLIGRAM, 4 TABLET (400 MG) BY MOUTH ONCE DAILY
     Route: 048
  4. CALCIUM CARBONATE\VITAMIN D [Concomitant]
     Active Substance: CALCIUM CARBONATE\VITAMIN D
     Indication: Product used for unknown indication
     Dosage: TIME INTERVAL: 0.33333333 DAYS: FORM STRENGTH: 500 MILLIGRAM, TAKE 1 TABLET BY MOUTH THREE TIMES ...
     Route: 048
  5. BD POSIFLUSH [Concomitant]
     Indication: Echocardiogram
     Dosage: FORM STRENGTH: 0.9 PERCENT, 2-10 ML INTRAVENOUSY FOR ECHO PROCEDURE
     Route: 042
  6. DEMADEX [Concomitant]
     Active Substance: TORSEMIDE
     Indication: Product used for unknown indication
     Dosage: FORM STRENGTH: 20 MILLIGRAM , TAKE 1 TABLET BY MOUTH ONCE DAILY
     Route: 048
  7. COLACE [Concomitant]
     Active Substance: DOCUSATE SODIUM
     Indication: Product used for unknown indication
     Dosage: FORM STRENGTH: 100 MILLIGRAM, TAKE 1 CAPSULE BY MOUTH TWICE DAILY
     Route: 065
  8. TOPROL XL [Concomitant]
     Active Substance: METOPROLOL SUCCINATE
     Indication: Product used for unknown indication
     Dosage: XL, FORM STRENGTH: 50 MILLIGRAM
     Route: 048
  9. NIZORAL [Concomitant]
     Active Substance: KETOCONAZOLE
     Indication: Product used for unknown indication
     Dosage: FORM STRENGTH: 2 PERCENT , LATHER ONTO SCALP AND LET SIT 3-5 MIN
     Route: 065
  10. DARATUMUMAB [Concomitant]
     Active Substance: DARATUMUMAB
     Indication: Product used for unknown indication
     Dosage: INJECT INTRAVENOUSLY
     Route: 042
  11. PEPCID [Concomitant]
     Active Substance: FAMOTIDINE
     Indication: Product used for unknown indication
     Dosage: TAKE BY MOUTH ONCE DAILY
     Route: 048
  12. KENALOG [Concomitant]
     Active Substance: TRIAMCINOLONE ACETONIDE
     Indication: Product used for unknown indication
     Dosage: FORM STRENGTH: 0.1 PERCENT
     Route: 065
  13. ZYRTEC [Concomitant]
     Active Substance: CETIRIZINE HYDROCHLORIDE
     Indication: Product used for unknown indication
     Dosage: FORM STRENGTH: 10 MILLIGRAM, TAKE 10 MG BY MOUTH ONCE DAILY
     Route: 048
  14. ZAROXOLYN [Concomitant]
     Active Substance: METOLAZONE
     Indication: Product used for unknown indication
     Dosage: FORM STRENGTH: 5 MILLIGRAM, ONCE A DAY UP TWICE WEEKLY WEIGHT }200
     Route: 048
  15. ELIQUIS [Concomitant]
     Active Substance: APIXABAN
     Indication: Product used for unknown indication
     Dosage: FORM STRENGTH: 5 MILLIGRAM, TAKE 1 TABLET BY MOUTH TWICE DAILY
     Route: 048
  16. SYNALAR [Concomitant]
     Active Substance: FLUOCINOLONE ACETONIDE
     Indication: Product used for unknown indication
     Dosage: FORM STRENGTH: 0.01 PERCENT
     Route: 065
  17. ZOVIRAX [Concomitant]
     Active Substance: ACYCLOVIR
     Indication: Product used for unknown indication
     Dosage: FORM STRENGTH: 400 MILLIGRAM
     Route: 048
  18. CRESTOR [Concomitant]
     Active Substance: ROSUVASTATIN CALCIUM
     Indication: Product used for unknown indication
     Dosage: FORM STRENGTH: 5 MILLIGRAM, TAKE 1 TABLET BY MOUTH DAILY AT BEDTIME
     Route: 048
  19. SYNTHROID [Concomitant]
     Active Substance: LEVOTHYROXINE SODIUM
     Indication: Product used for unknown indication
     Dosage: FORM STRENGTH: 200 MICROGRAM, DURATION TEXT: TAKE 1 TABLET BY MOUTH DAILY (6AM)
     Route: 048
  20. THERA-M [Concomitant]
     Indication: Product used for unknown indication
     Dosage: PLUS, 9 MG IRON-400 MCG TABLET
     Route: 048
  21. EMLA [Concomitant]
     Active Substance: LIDOCAINE\PRILOCAINE
     Indication: Product used for unknown indication
     Dosage: FORM STRENGTH: 2.5 PERCENT, APPLY AFFECTED AREA AS NEEDED
     Route: 061
  22. KLOR-CON [Concomitant]
     Active Substance: POTASSIUM CHLORIDE
     Indication: Product used for unknown indication
     Dosage: FORM STRENGTH: 20 MILLIEQUIVALENTS, TAKE 20 MEQ BY MOUTH TWICE DAILY
     Route: 048

REACTIONS (3)
  - Death [Fatal]
  - Off label use [Unknown]
  - Product use complaint [Unknown]

NARRATIVE: CASE EVENT DATE: 20230608
